FAERS Safety Report 5208316-6 (Version None)
Quarter: 2007Q1

REPORT INFORMATION
  Report Type: 
  Country: None (occurrence: None)
  Receive Date: 20070110
  Receipt Date: 20070110
  Transmission Date: 20070707
  Serious: Yes (Death)
  Sender: FDA-Public Use
  Company Number: None

PATIENT
  Age: 44 Year
  Sex: Male
  Weight: 83.0083 kg

DRUGS (4)
  1. FENTANYL TRANSDERMAL SYSTEM [Suspect]
     Indication: PAIN MANAGEMENT
     Dosage: 1 PATCH Q 72 HOURS TOPICALLY
     Route: 061
     Dates: start: 20061222, end: 20061226
  2. WARFARIN SODIUM [Concomitant]
  3. NORVASC [Concomitant]
  4. LEXAPRO [Concomitant]

REACTIONS (1)
  - DEATH [None]
